FAERS Safety Report 16001632 (Version 1)
Quarter: 2019Q1

REPORT INFORMATION
  Report Type: Spontaneous
  Country: US (occurrence: US)
  Receive Date: 20190225
  Receipt Date: 20190225
  Transmission Date: 20190418
  Serious: No
  Sender: FDA-Public Use
  Company Number: US-ALLERGAN-1827156US

PATIENT
  Sex: Female
  Weight: 50.79 kg

DRUGS (2)
  1. HUMIRA [Suspect]
     Active Substance: ADALIMUMAB
     Indication: RHEUMATOID ARTHRITIS
     Dosage: 40 MG, 1 IN 2 WEEK
     Route: 058
     Dates: start: 201612
  2. NORCO [Suspect]
     Active Substance: ACETAMINOPHEN\HYDROCODONE BITARTRATE
     Indication: ARTHRALGIA
     Dosage: UNK
     Route: 065
     Dates: start: 2017, end: 2017

REACTIONS (19)
  - Depression [Recovered/Resolved]
  - Panic attack [Recovered/Resolved]
  - Ankle deformity [Not Recovered/Not Resolved]
  - Visual impairment [Not Recovered/Not Resolved]
  - Nausea [Recovered/Resolved]
  - Shoulder deformity [Not Recovered/Not Resolved]
  - Weight decreased [Not Recovered/Not Resolved]
  - Vomiting [Recovered/Resolved]
  - Fear [Unknown]
  - Knee deformity [Not Recovered/Not Resolved]
  - Headache [Unknown]
  - Arthralgia [Not Recovered/Not Resolved]
  - Pain in extremity [Not Recovered/Not Resolved]
  - Elbow deformity [Not Recovered/Not Resolved]
  - Foot deformity [Not Recovered/Not Resolved]
  - Fall [Recovered/Resolved]
  - Migraine [Recovered/Resolved]
  - Back pain [Not Recovered/Not Resolved]
  - Nausea [Recovered/Resolved]

NARRATIVE: CASE EVENT DATE: 2017
